FAERS Safety Report 7861333-X (Version None)
Quarter: 2011Q4

REPORT INFORMATION
  Report Type: 
  Country: None (occurrence: None)
  Receive Date: 20111027
  Receipt Date: 20111011
  Transmission Date: 20120403
  Serious: Yes (Life-Threatening, Hospitalization)
  Sender: FDA-Public Use
  Company Number: US-ELI_LILLY_AND_COMPANY-US201109002848

PATIENT
  Sex: Male

DRUGS (19)
  1. GLUCOSAMINE [Concomitant]
     Indication: ARTHRALGIA
     Dosage: UNK
     Dates: start: 20091002
  2. FOLIC ACID [Concomitant]
     Indication: PROPHYLAXIS
     Dosage: UNK
     Dates: start: 20110919
  3. AVODART [Concomitant]
     Dosage: UNK
     Dates: start: 20111002
  4. PEMETREXED [Suspect]
     Indication: NON-SMALL CELL LUNG CANCER STAGE IV
     Dosage: 500 MG/M2, EVERY 21 DAYS
     Route: 042
     Dates: start: 20110726
  5. AVODART [Concomitant]
     Indication: BENIGN PROSTATIC HYPERPLASIA
     Dosage: UNK
     Dates: start: 20091002
  6. PROCHLORPERAZINE [Concomitant]
     Indication: PROPHYLAXIS
     Dosage: UNK
     Dates: start: 20110726
  7. NORCO [Concomitant]
     Indication: PAIN
     Dosage: UNK
  8. BEVACIZUMAB [Suspect]
     Indication: NON-SMALL CELL LUNG CANCER STAGE IV
     Dosage: 15 MG/KG, EVERY 21 DAYS
     Route: 042
     Dates: start: 20110726, end: 20110930
  9. FLOMAX [Concomitant]
     Indication: BENIGN PROSTATIC HYPERPLASIA
     Dosage: UNK
     Dates: start: 20091002
  10. DEXAMETHASONE [Concomitant]
     Indication: PROPHYLACTIC CHEMOTHERAPY
     Dosage: UNK
     Dates: start: 20110725
  11. CARBOPLATIN [Suspect]
     Indication: NON-SMALL CELL LUNG CANCER STAGE IV
     Dosage: 6 AUC, EVERY 21 DAYS
     Route: 042
     Dates: start: 20110726
  12. ONDANSETRON [Concomitant]
     Indication: PROPHYLACTIC CHEMOTHERAPY
     Dosage: UNK
     Dates: start: 20110626
  13. CODEINE PHOSPHATE [Concomitant]
     Indication: COUGH
     Dosage: UNK
     Dates: start: 20110622
  14. ASPIRIN [Concomitant]
     Indication: PROPHYLAXIS
     Dosage: UNK
     Dates: start: 20091002
  15. FLOMAX [Concomitant]
     Dosage: UNK
     Dates: start: 20111002
  16. AMBIEN [Concomitant]
     Indication: INSOMNIA
     Dosage: UNK
  17. ALBUTEROL [Concomitant]
     Indication: COUGH
     Dosage: UNK
  18. VITAMIN B-12 [Concomitant]
     Indication: PROPHYLAXIS
     Dosage: UNK
     Dates: start: 20110919
  19. MILK OF MAGNESIA TAB [Concomitant]
     Indication: CONSTIPATION
     Dosage: UNK
     Dates: start: 20110802

REACTIONS (4)
  - PULMONARY EMBOLISM [None]
  - DYSPNOEA [None]
  - PLEURAL EFFUSION [None]
  - DEEP VEIN THROMBOSIS [None]
